FAERS Safety Report 8951117 (Version 4)
Quarter: 2013Q3

REPORT INFORMATION
  Report Type: Report from Study
  Country: CA (occurrence: CA)
  Receive Date: 20121207
  Receipt Date: 20130920
  Transmission Date: 20140515
  Serious: Yes (Hospitalization, Disabling)
  Sender: FDA-Public Use
  Company Number: CA-SANOFI-AVENTIS-2012SA087690

PATIENT
  Age: 42 Year
  Sex: Female
  Weight: 72.2 kg

DRUGS (9)
  1. DOCETAXEL [Suspect]
     Indication: HER-2 POSITIVE BREAST CANCER
     Dosage: FORM: VIAL?DOSE LEVEL 75 MG/M2
     Route: 042
     Dates: start: 20090318, end: 20090723
  2. DOCETAXEL [Suspect]
     Indication: HER-2 POSITIVE BREAST CANCER
     Dosage: FORM: VIAL?DOSE LEVEL 75 MG/M2
     Route: 042
     Dates: start: 20090318, end: 20090723
  3. BEVACIZUMAB [Suspect]
     Indication: HER-2 POSITIVE BREAST CANCER
     Dosage: DOSE LEVEL 15 MG/KG?FORM VIAL
     Route: 042
     Dates: start: 20090318, end: 20090723
  4. TRASTUZUMAB [Suspect]
     Indication: HER-2 POSITIVE BREAST CANCER
     Dosage: DOSE LEVEL 6 MG/KG?FORM VIAL
     Route: 042
     Dates: start: 20090318, end: 20090723
  5. TRASTUZUMAB [Suspect]
     Indication: HER-2 POSITIVE BREAST CANCER
     Dosage: DOSAGE REGIMEN NOT REPORTED
     Route: 042
     Dates: start: 20090814, end: 20100317
  6. CARBOPLATIN [Suspect]
     Indication: HER-2 POSITIVE BREAST CANCER
     Dosage: DOSE LEVEL 6AUC?FORM VIAL
     Route: 042
     Dates: start: 20090318, end: 20090723
  7. AMLODIPINE BESILATE [Concomitant]
     Dates: start: 20090419
  8. HYDROCHLOROTHIAZIDE [Concomitant]
     Dates: start: 20090419
  9. PANTOPRAZOLE [Concomitant]
     Dates: start: 20090428

REACTIONS (2)
  - Encephalopathy [Recovered/Resolved with Sequelae]
  - Febrile neutropenia [Recovered/Resolved]
